FAERS Safety Report 7371338-3 (Version None)
Quarter: 2011Q1

REPORT INFORMATION
  Report Type: 
  Country: None (occurrence: None)
  Receive Date: 20110324
  Receipt Date: 20100914
  Transmission Date: 20110831
  Serious: Yes (Other)
  Sender: FDA-Public Use
  Company Number: US-BAYER-201021545NA

PATIENT
  Sex: Female
  Weight: 86.168 kg

DRUGS (15)
  1. IBUPROFEN [Concomitant]
     Route: 048
  2. XOPENEX [Concomitant]
     Dosage: UNK
     Dates: start: 20071201
  3. YASMIN [Suspect]
     Indication: CONTRACEPTION
     Dosage: UNK UNK, QD
     Dates: start: 20030101, end: 20081101
  4. TAMIFLU [Concomitant]
     Dosage: UNK
     Route: 048
     Dates: start: 20080207
  5. EFFEXOR XR [Concomitant]
     Dosage: UNK
     Route: 048
     Dates: start: 20071107
  6. METHYLPREDNISOLONE ACETATE [Concomitant]
     Dosage: UNK
     Route: 048
     Dates: start: 20071119
  7. PREDNISONE [Concomitant]
     Dosage: UNK
     Route: 048
     Dates: start: 20071201
  8. AMOXICILLIN [Concomitant]
     Dosage: UNK
     Route: 048
     Dates: start: 20080214
  9. PROMETHAZINE [Concomitant]
     Route: 048
  10. SUDAL [Concomitant]
     Dosage: UNK
     Route: 048
     Dates: start: 20080207
  11. ALLEGRA-D [FEXOFENADINE HYDROCHLORIDE,PSEUDOEPHEDRINE HYDROCHLORIDE] [Concomitant]
  12. OXYCODONE HCL AND ACETAMINOPHEN [Concomitant]
  13. COTRIM [Concomitant]
     Dosage: UNK
     Route: 048
     Dates: start: 20071201
  14. YAZ [Suspect]
     Indication: CONTRACEPTION
     Dosage: UNK UNK, UNK
     Route: 048
     Dates: start: 20030101, end: 20081101
  15. PROZAC [Concomitant]
     Route: 048

REACTIONS (5)
  - GALLBLADDER DISORDER [None]
  - PAIN [None]
  - CHOLECYSTITIS CHRONIC [None]
  - GALLBLADDER CHOLESTEROLOSIS [None]
  - CHOLELITHIASIS [None]
